FAERS Safety Report 7454585-1 (Version None)
Quarter: 2011Q2

REPORT INFORMATION
  Report Type: 
  Country: None (occurrence: None)
  Receive Date: 20110503
  Receipt Date: 20110429
  Transmission Date: 20111010
  Serious: Yes (Other)
  Sender: FDA-Public Use
  Company Number: US-BAYER-2011-037120

PATIENT

DRUGS (1)
  1. YAZ [Suspect]
     Dosage: UNK
     Dates: start: 20061201, end: 20090201

REACTIONS (1)
  - GALLBLADDER DISORDER [None]
